FAERS Safety Report 11852725 (Version 1)
Quarter: 2015Q4

REPORT INFORMATION
  Report Type: Spontaneous
  Country: US (occurrence: US)
  Receive Date: 20151218
  Receipt Date: 20151218
  Transmission Date: 20160305
  Serious: No
  Sender: FDA-Public Use
  Company Number: US-BAYER-2015-490440

PATIENT
  Age: 69 Year
  Sex: Female
  Weight: 47.62 kg

DRUGS (2)
  1. CLARITIN-D 12 HOUR [Suspect]
     Active Substance: LORATADINE\PSEUDOEPHEDRINE SULFATE
     Indication: SEASONAL ALLERGY
     Dosage: 0.5 DF, QD
     Route: 048
     Dates: start: 20151216
  2. CLARITIN-D 12 HOUR [Suspect]
     Active Substance: LORATADINE\PSEUDOEPHEDRINE SULFATE
     Indication: SEASONAL ALLERGY
     Dosage: 1 DF, QD
     Route: 048
     Dates: start: 2014, end: 201512

REACTIONS (3)
  - Psychomotor hyperactivity [Unknown]
  - Product use issue [Unknown]
  - Product use issue [None]

NARRATIVE: CASE EVENT DATE: 2014
